FAERS Safety Report 5823364-0 (Version None)
Quarter: 2008Q3

REPORT INFORMATION
  Report Type: 
  Country: None (occurrence: None)
  Receive Date: 20080725
  Receipt Date: 20080718
  Transmission Date: 20090109
  Serious: Yes (Hospitalization)
  Sender: FDA-Public Use
  Company Number: US-BRISTOL-MYERS SQUIBB COMPANY-14235592

PATIENT
  Age: 31 Year
  Sex: Female
  Weight: 74 kg

DRUGS (2)
  1. CETUXIMAB [Suspect]
     Indication: CERVIX CARCINOMA
     Dosage: INITIATED 25JAN08. LOADING DOSE 400MG/M2; 250MG/M2 OVER 60MINS
     Route: 042
     Dates: start: 20080418, end: 20080418
  2. TAXOL [Suspect]
     Dates: start: 20080523

REACTIONS (5)
  - ABDOMINAL PAIN [None]
  - DYSPEPSIA [None]
  - NAUSEA [None]
  - OESOPHAGEAL INFECTION [None]
  - VOMITING [None]
